FAERS Safety Report 10407302 (Version 2)
Quarter: 2014Q3

REPORT INFORMATION
  Report Type: Spontaneous
  Country: US (occurrence: US)
  Receive Date: 20140825
  Receipt Date: 20140902
  Transmission Date: 20150326
  Serious: Yes (Other)
  Sender: FDA-Public Use
  Company Number: US-BAYER-2014-124949

PATIENT
  Age: 69 Year
  Sex: Female

DRUGS (1)
  1. CLIMARA [Suspect]
     Active Substance: ESTRADIOL
     Indication: PROPHYLAXIS
     Dosage: 0.25 MG, UNK
     Route: 062
     Dates: start: 1996

REACTIONS (3)
  - Drug ineffective [None]
  - Hot flush [None]
  - Thyroidectomy [None]

NARRATIVE: CASE EVENT DATE: 2014
